FAERS Safety Report 17284362 (Version 1)
Quarter: 2020Q1

REPORT INFORMATION
  Report Type: Spontaneous
  Country: US (occurrence: US)
  Receive Date: 20200117
  Receipt Date: 20200117
  Transmission Date: 20200409
  Serious: No
  Sender: FDA-Public Use
  Company Number: US-CHILTERN-US-2019-000864

PATIENT
  Age: 82 Year
  Sex: Male

DRUGS (1)
  1. RHOPRESSA [Suspect]
     Active Substance: NETARSUDIL MESYLATE
     Indication: INTRAOCULAR PRESSURE INCREASED
     Dosage: 1 GTT IN THE LEFT EYE, QD
     Route: 047
     Dates: start: 20190702, end: 20190730

REACTIONS (1)
  - Corneal oedema [Recovered/Resolved]
